FAERS Safety Report 18030426 (Version 3)
Quarter: 2021Q1

REPORT INFORMATION
  Report Type: Other
  Country: JP (occurrence: JP)
  Receive Date: 20200716
  Receipt Date: 20210118
  Transmission Date: 20210419
  Serious: Yes (Death, Life-Threatening, Other)
  Sender: FDA-Public Use
  Company Number: JP-ASTELLAS-2020JP010214

PATIENT
  Age: 36 Year
  Sex: Female
  Weight: 100 kg

DRUGS (44)
  1. PROGRAF [Suspect]
     Active Substance: TACROLIMUS
     Dosage: UNK UNK, UNKNOWN FREQ.
     Route: 042
     Dates: start: 20180422
  2. PROGRAF [Suspect]
     Active Substance: TACROLIMUS
     Indication: PROPHYLAXIS AGAINST GRAFT VERSUS HOST DISEASE
     Route: 048
     Dates: start: 20180407
  3. PROGRAF [Suspect]
     Active Substance: TACROLIMUS
     Route: 048
     Dates: end: 20180422
  4. URSODEOXYCHOLIC ACID [Concomitant]
     Active Substance: URSODIOL
     Indication: PRODUCT USED FOR UNKNOWN INDICATION
     Route: 048
     Dates: start: 20180407, end: 20180422
  5. POLARAMINE [Concomitant]
     Active Substance: DEXCHLORPHENIRAMINE MALEATE
     Indication: PRODUCT USED FOR UNKNOWN INDICATION
     Dosage: 5 MG/ML, UNKNOWN FREQ.
     Route: 042
     Dates: start: 20180412, end: 20180412
  6. ACELIO [Concomitant]
     Active Substance: ACETAMINOPHEN
     Indication: PRODUCT USED FOR UNKNOWN INDICATION
     Dosage: 1000 MG/DAY, UNKNOWN FREQ.
     Route: 065
     Dates: start: 20180414, end: 20180414
  7. ACELIO [Concomitant]
     Active Substance: ACETAMINOPHEN
     Dosage: 1000 MG/DAY, UNKNOWN FREQ.
     Route: 065
     Dates: start: 20180415, end: 20180415
  8. FRANDOL [Concomitant]
     Active Substance: ISOSORBIDE DINITRATE
     Indication: PRODUCT USED FOR UNKNOWN INDICATION
     Dosage: UNK UNK, UNKNOWN FREQ.
     Route: 065
  9. PROGRAF [Suspect]
     Active Substance: TACROLIMUS
     Indication: PROPHYLAXIS AGAINST GRAFT VERSUS HOST DISEASE
     Dosage: 0.02 MG/KG, UNKNOWN FREQ.
     Route: 042
  10. PROGRAF [Suspect]
     Active Substance: TACROLIMUS
     Dosage: 0.9 MG/DAY, UNKNOWN FREQ.
     Route: 042
  11. POLARAMINE [Concomitant]
     Active Substance: DEXCHLORPHENIRAMINE MALEATE
     Dosage: 5 MG/ML, UNKNOWN FREQ.
     Route: 042
     Dates: start: 20180420, end: 20180420
  12. GLACTIV [Concomitant]
     Active Substance: SITAGLIPTIN
     Indication: PRODUCT USED FOR UNKNOWN INDICATION
     Route: 048
     Dates: start: 20180412, end: 20180418
  13. LOXOPROFEN [Concomitant]
     Active Substance: LOXOPROFEN
     Indication: PRODUCT USED FOR UNKNOWN INDICATION
     Route: 048
     Dates: start: 20180415, end: 20180415
  14. REBAMIPIDE [Concomitant]
     Active Substance: REBAMIPIDE
     Indication: PRODUCT USED FOR UNKNOWN INDICATION
     Route: 048
     Dates: start: 20180415, end: 20180415
  15. ZOSYN [Concomitant]
     Active Substance: PIPERACILLIN SODIUM\TAZOBACTAM SODIUM
     Indication: PRODUCT USED FOR UNKNOWN INDICATION
     Route: 065
     Dates: start: 20180420, end: 20180422
  16. PREDNISOLONE. [Concomitant]
     Active Substance: PREDNISOLONE
     Dosage: 30 MG/DAY, UNKNOWN FREQ.
     Route: 065
  17. SODIUM RABEPRAZOLE [Concomitant]
     Active Substance: RABEPRAZOLE SODIUM
     Indication: PRODUCT USED FOR UNKNOWN INDICATION
     Dosage: 10 MG, ONCE DAILY, AFTER BREAKFAST
     Route: 048
     Dates: start: 20180407, end: 20180422
  18. POLARAMINE [Concomitant]
     Active Substance: DEXCHLORPHENIRAMINE MALEATE
     Dosage: 5 MG/ML, UNKNOWN FREQ.
     Route: 042
     Dates: start: 20180419, end: 20180419
  19. INSULIN [Concomitant]
     Active Substance: INSULIN NOS
     Indication: PRODUCT USED FOR UNKNOWN INDICATION
     Dosage: 4 IU/DAY, UNKNOWN FREQ.
     Route: 065
     Dates: start: 20180413, end: 20180422
  20. ACELIO [Concomitant]
     Active Substance: ACETAMINOPHEN
     Dosage: 1000 MG/DAY, UNKNOWN FREQ.
     Route: 065
     Dates: start: 20180419, end: 20180419
  21. NOVORAPID [Concomitant]
     Active Substance: INSULIN ASPART
     Indication: PRODUCT USED FOR UNKNOWN INDICATION
     Dosage: APPROXIMATELY 10 IU/DAY, UNKNOWN FREQ.
     Route: 065
     Dates: start: 20180418, end: 20180422
  22. PROGRAF [Suspect]
     Active Substance: TACROLIMUS
     Dosage: INCREASED, UNKNOWN FREQ.
     Route: 048
  23. DAIPHEN [Concomitant]
     Active Substance: SULFAMETHOXAZOLE\TRIMETHOPRIM
     Dosage: 1 DF, ONCE DAILY, AFTER BREAKFAST
     Route: 048
     Dates: start: 20180411, end: 20180411
  24. DENOSINE [Concomitant]
     Indication: PRODUCT USED FOR UNKNOWN INDICATION
     Dosage: 500 MG/DAY, UNKNOWN FREQ.
     Route: 065
     Dates: start: 20180407, end: 20180422
  25. KENKETU GLOVENIN?I [Concomitant]
     Active Substance: HUMAN IMMUNOGLOBULIN G
     Indication: PRODUCT USED FOR UNKNOWN INDICATION
     Dosage: 2500 MG X 4, UNKNOWN FREQ.
     Route: 065
     Dates: start: 20180407, end: 20180407
  26. ACETAMINOPHEN. [Concomitant]
     Active Substance: ACETAMINOPHEN
     Route: 048
     Dates: start: 20180421, end: 20180421
  27. CYCLOPHOSPHAMIDE. [Concomitant]
     Active Substance: CYCLOPHOSPHAMIDE
     Indication: PROPHYLAXIS AGAINST GRAFT VERSUS HOST DISEASE
     Route: 065
  28. VICCLOX [Concomitant]
     Active Substance: ACYCLOVIR SODIUM
     Indication: PRODUCT USED FOR UNKNOWN INDICATION
     Route: 048
     Dates: start: 20180420, end: 20180422
  29. MYCOPHENOLATE MOFETIL. [Concomitant]
     Active Substance: MYCOPHENOLATE MOFETIL
     Indication: PROPHYLAXIS AGAINST GRAFT VERSUS HOST DISEASE
     Route: 048
     Dates: start: 20180407, end: 20180422
  30. FIRSTCIN [Concomitant]
     Active Substance: CEFOZOPRAN HYDROCHLORIDE
     Indication: PRODUCT USED FOR UNKNOWN INDICATION
     Dosage: 4 G/DAY, UNKNOWN FREQ.
     Route: 065
     Dates: start: 20180407, end: 20180419
  31. VFEND [Concomitant]
     Active Substance: VORICONAZOLE
     Indication: PRODUCT USED FOR UNKNOWN INDICATION
     Route: 048
     Dates: start: 20180407, end: 20180410
  32. DAIPHEN [Concomitant]
     Active Substance: SULFAMETHOXAZOLE\TRIMETHOPRIM
     Indication: PRODUCT USED FOR UNKNOWN INDICATION
     Dosage: 1 DF, ONCE DAILY, AFTER BREAKFAST
     Route: 048
     Dates: start: 20180409, end: 20180409
  33. DAIPHEN [Concomitant]
     Active Substance: SULFAMETHOXAZOLE\TRIMETHOPRIM
     Dosage: 1 DF, ONCE DAILY, AFTER BREAKFAST
     Route: 048
     Dates: start: 20180413, end: 20180413
  34. DAIPHEN [Concomitant]
     Active Substance: SULFAMETHOXAZOLE\TRIMETHOPRIM
     Dosage: 1 DF, ONCE DAILY, AFTER BREAKFAST
     Route: 048
     Dates: start: 20180416, end: 20180416
  35. DAIPHEN [Concomitant]
     Active Substance: SULFAMETHOXAZOLE\TRIMETHOPRIM
     Dosage: 1 DF, ONCE DAILY, AFTER BREAKFAST
     Route: 048
     Dates: start: 20180420, end: 20180420
  36. ACETAMINOPHEN. [Concomitant]
     Active Substance: ACETAMINOPHEN
     Indication: PRODUCT USED FOR UNKNOWN INDICATION
     Route: 048
     Dates: start: 20180420, end: 20180420
  37. PROGRAF [Suspect]
     Active Substance: TACROLIMUS
     Dosage: 0.9 MG/DAY, UNKNOWN FREQ.
     Route: 042
     Dates: end: 20180406
  38. PREDNISOLONE. [Concomitant]
     Active Substance: PREDNISOLONE
     Indication: RASH
     Dosage: 20 MG/DAY, UNKNOWN FREQ.
     Route: 065
  39. METHYLPREDNISOLONE SODIUM SUCCINATE. [Concomitant]
     Active Substance: METHYLPREDNISOLONE SODIUM SUCCINATE
     Indication: PRODUCT USED FOR UNKNOWN INDICATION
     Route: 065
     Dates: start: 20180407, end: 20180411
  40. ZACRAS [Concomitant]
     Active Substance: AMLODIPINE BESYLATE\AZILSARTAN
     Indication: PRODUCT USED FOR UNKNOWN INDICATION
     Dosage: UNK UNK, UNKNOWN FREQ.
     Route: 048
     Dates: start: 20180407, end: 20180422
  41. DAIPHEN [Concomitant]
     Active Substance: SULFAMETHOXAZOLE\TRIMETHOPRIM
     Dosage: 1 DF, ONCE DAILY, AFTER BREAKFAST
     Route: 048
     Dates: start: 20180418, end: 20180418
  42. AMLODIPINE [Concomitant]
     Active Substance: AMLODIPINE BESYLATE
     Indication: PRODUCT USED FOR UNKNOWN INDICATION
     Dosage: 10 MG, ONCE DAILY, AFTER BREAKFAST
     Route: 048
     Dates: start: 20180409, end: 20180422
  43. NEUTROGIN [Concomitant]
     Active Substance: LENOGRASTIM
     Indication: PRODUCT USED FOR UNKNOWN INDICATION
     Dosage: 100 UG/DAY, UNKNOWN FREQ.
     Route: 058
     Dates: start: 20180418, end: 20180422
  44. SOLU?CORTEF [Concomitant]
     Active Substance: HYDROCORTISONE SODIUM SUCCINATE
     Indication: PRODUCT USED FOR UNKNOWN INDICATION
     Route: 065
     Dates: start: 20180419, end: 20180419

REACTIONS (5)
  - Hepatorenal failure [Fatal]
  - Fungaemia [Fatal]
  - Graft versus host disease [Not Recovered/Not Resolved]
  - Drug level decreased [Unknown]
  - Candida infection [Unknown]

NARRATIVE: CASE EVENT DATE: 20180319
